FAERS Safety Report 9795636 (Version 2)
Quarter: 2014Q1

REPORT INFORMATION
  Report Type: Spontaneous
  Country: US (occurrence: US)
  Receive Date: 20140103
  Receipt Date: 20140226
  Transmission Date: 20141002
  Serious: Yes (Other)
  Sender: FDA-Public Use
  Company Number: US-PFIZER INC-2013373163

PATIENT
  Age: 93 Year
  Sex: Female
  Weight: 57.6 kg

DRUGS (1)
  1. XALATAN [Suspect]
     Indication: GLAUCOMA
     Dosage: UNK, 1X/DAY
     Route: 047

REACTIONS (3)
  - Hypoaesthesia [Unknown]
  - Hypokinesia [Unknown]
  - Dizziness [Unknown]
